FAERS Safety Report 7061322-1 (Version None)
Quarter: 2010Q4

REPORT INFORMATION
  Report Type: 
  Country: None (occurrence: None)
  Receive Date: 20101026
  Receipt Date: 20101015
  Transmission Date: 20110411
  Serious: Yes (Hospitalization)
  Sender: FDA-Public Use
  Company Number: US-JNJFOC-20100808516

PATIENT
  Sex: Female
  Weight: 56.3 kg

DRUGS (5)
  1. REMICADE [Suspect]
     Indication: CROHN'S DISEASE
     Route: 042
  2. CIMZIA [Concomitant]
     Indication: CROHN'S DISEASE
  3. CELEXA [Concomitant]
  4. PREDNISONE [Concomitant]
  5. IMODIUM [Concomitant]

REACTIONS (1)
  - CROHN'S DISEASE [None]
